FAERS Safety Report 25062023 (Version 1)
Quarter: 2025Q1

REPORT INFORMATION
  Report Type: Spontaneous
  Country: DE (occurrence: DE)
  Receive Date: 20250311
  Receipt Date: 20250311
  Transmission Date: 20250409
  Serious: Yes (Other)
  Sender: NOVARTIS
  Company Number: DE-002147023-NVSC2025DE038484

PATIENT
  Sex: Male

DRUGS (1)
  1. VALSARTAN [Suspect]
     Active Substance: VALSARTAN
     Indication: Hypertension
     Route: 065
     Dates: start: 2023

REACTIONS (7)
  - Renal cancer [Unknown]
  - Abdominal pain upper [Unknown]
  - Dizziness [Recovered/Resolved]
  - Vertigo [Recovered/Resolved]
  - Hepatic steatosis [Unknown]
  - Liver function test abnormal [Unknown]
  - Cardiac output decreased [Unknown]
